FAERS Safety Report 8598569-9 (Version None)
Quarter: 2012Q3

REPORT INFORMATION
  Report Type: 
  Country: None (occurrence: None)
  Receive Date: 20120816
  Receipt Date: 20120810
  Transmission Date: 20120928
  Serious: Yes (Hospitalization)
  Sender: FDA-Public Use
  Company Number: US-PFIZER INC-2012195668

PATIENT
  Age: 51 Year
  Sex: Male
  Weight: 65.4 kg

DRUGS (43)
  1. VELCADE [Suspect]
     Indication: MANTLE CELL LYMPHOMA
     Route: 065
     Dates: start: 20120704
  2. METHOTREXATE [Suspect]
     Dosage: 1504 MG IN 250 ML OF NACL 0.9 % INFUSED OVER 22 HOURS AT 11.3636 ML/HR
     Route: 042
     Dates: start: 20120706
  3. RED BLOOD CELLS [Concomitant]
     Route: 042
     Dates: start: 20120705, end: 20120706
  4. PANTOPRAZOLE [Concomitant]
     Route: 065
  5. DIPHENHYDRAMINE HYDROCHLORIDE [Concomitant]
     Route: 042
     Dates: start: 20120705
  6. SODIUM BICARBONATE [Concomitant]
     Route: 065
     Dates: start: 20120706
  7. HYDROCORTISONE [Concomitant]
     Route: 042
     Dates: start: 20120706
  8. HALOPERIDOL [Concomitant]
     Route: 065
  9. RITUXIMAB [Suspect]
     Indication: MANTLE CELL LYMPHOMA
     Route: 042
     Dates: start: 20120606, end: 20120611
  10. BENADRYL [Concomitant]
     Indication: PREMEDICATION
     Route: 042
     Dates: start: 20120704
  11. ACETAMINOPHEN [Concomitant]
     Route: 048
     Dates: start: 20120704
  12. MESNA [Concomitant]
     Route: 065
  13. CEFTAZIDIME [Concomitant]
     Route: 042
     Dates: start: 20120703
  14. VORICONAZOLE [Concomitant]
     Route: 048
  15. ACETAMINOPHEN [Concomitant]
     Route: 048
     Dates: start: 20120705
  16. XANAX [Concomitant]
     Route: 048
     Dates: start: 20120706
  17. OXYCODONE [Concomitant]
     Route: 065
  18. VICODIN [Concomitant]
     Indication: PAIN
     Route: 065
     Dates: start: 20120703
  19. NEULASTA [Suspect]
     Indication: MANTLE CELL LYMPHOMA
     Route: 058
     Dates: start: 20120710
  20. TYLENOL [Concomitant]
     Indication: PREMEDICATION
     Route: 048
     Dates: start: 20120704
  21. ZOLPIDEM [Concomitant]
     Route: 065
  22. MEPERIDINE HCL [Concomitant]
     Route: 065
  23. ACETAMINOPHEN [Concomitant]
     Route: 048
     Dates: start: 20120523
  24. VALTREX [Concomitant]
     Route: 065
  25. CYTARABINE [Suspect]
     Indication: MANTLE CELL LYMPHOMA
     Dosage: 5.64 G WITH 500 ML OF 0.9 % NACL INFUSED OVER 2 HOURS AT 250 ML/HR
     Route: 042
     Dates: start: 20120706, end: 20120707
  26. RITUXIMAB [Suspect]
     Dosage: 375 MG/M2, UNK
     Route: 042
  27. RED BLOOD CELLS [Concomitant]
     Route: 042
     Dates: start: 20120704
  28. ONDANSETRON [Concomitant]
     Route: 065
  29. DEXAMETHASONE SODIUM PHOSPHATE [Suspect]
     Indication: MANTLE CELL LYMPHOMA
     Dosage: UNK
     Route: 065
  30. DOXORUBICIN HCL [Suspect]
     Indication: MANTLE CELL LYMPHOMA
     Route: 042
     Dates: start: 20120606, end: 20120611
  31. CYCLOPHOSPHAMIDE [Suspect]
     Indication: MANTLE CELL LYMPHOMA
     Route: 065
  32. METHOTREXATE [Suspect]
     Indication: MANTLE CELL LYMPHOMA
     Dosage: 376 MG WITH 250 ML OF 0.9 % SODIUM CHLORIDE, INFUSE OVER 2 HOURS
     Route: 042
     Dates: start: 20120705, end: 20120705
  33. DOXORUBICIN HCL [Suspect]
     Route: 042
     Dates: start: 20120704
  34. VINCRISTINE [Suspect]
     Indication: MANTLE CELL LYMPHOMA
     Route: 065
  35. RASBURICASE [Suspect]
     Indication: MANTLE CELL LYMPHOMA
     Dosage: 100 ML/HR FOR 15 MIN THEN 100 ML/HR FOR 30 MIN THEN INCREASED TO 400 ML/HR
     Route: 042
     Dates: start: 20120703
  36. LORAZEPAM [Concomitant]
     Route: 065
  37. CIPROFLOXACIN [Concomitant]
     Route: 048
  38. DIPHENHYDRAMINE HYDROCHLORIDE [Concomitant]
     Route: 042
     Dates: start: 20120704
  39. LEUCOVORIN CALCIUM [Concomitant]
     Route: 065
     Dates: start: 20120706
  40. RITUXAN [Concomitant]
     Indication: MANTLE CELL LYMPHOMA
     Route: 065
     Dates: start: 20120704
  41. MEROPENEM [Concomitant]
     Route: 065
  42. FLUCONAZOLE [Suspect]
     Indication: MANTLE CELL LYMPHOMA
     Route: 065
     Dates: start: 20120704
  43. HYDROCORTISONE [Concomitant]
     Route: 042
     Dates: start: 20120704

REACTIONS (4)
  - PULMONARY CAVITATION [None]
  - DEVICE RELATED INFECTION [None]
  - THROMBOPHLEBITIS [None]
  - PSEUDOMONAS INFECTION [None]
